FAERS Safety Report 6347391-2 (Version None)
Quarter: 2009Q3

REPORT INFORMATION
  Report Type: 
  Country: None (occurrence: None)
  Receive Date: 20090910
  Receipt Date: 20090901
  Transmission Date: 20100115
  Serious: Yes (Hospitalization)
  Sender: FDA-Public Use
  Company Number: JP-ABBOTT-09P-087-0573458-00

PATIENT
  Age: 79 Year
  Sex: Male

DRUGS (12)
  1. LEUPLIN SR FOR INJECTION 11.25 MG [Suspect]
     Indication: PROSTATE CANCER
     Route: 058
     Dates: start: 20060725, end: 20070109
  2. LEUPLIN SR FOR INJECTION 11.25 MG [Suspect]
     Route: 058
     Dates: start: 20070206, end: 20090303
  3. TAKEPRON [Concomitant]
     Indication: GASTRITIS
     Route: 048
     Dates: start: 20090307
  4. KIPRES [Concomitant]
     Indication: ASTHMA
     Route: 048
  5. UNIFYL [Concomitant]
     Indication: ASTHMA
     Route: 048
  6. MUCODYNE [Concomitant]
     Indication: ASTHMA
     Route: 048
  7. GASTER [Concomitant]
     Indication: GASTRITIS
     Route: 048
     Dates: end: 20090304
  8. PREDONINE [Concomitant]
     Indication: ASTHMA
     Route: 048
  9. QVAR 40 [Concomitant]
     Indication: ASTHMA
     Route: 055
  10. MEPTIN AIR [Concomitant]
     Indication: ASTHMA
     Route: 055
  11. ACTONEL [Concomitant]
     Indication: OSTEOPOROSIS
     Route: 048
  12. SEREVENT [Concomitant]
     Indication: ASTHMA
     Route: 055

REACTIONS (1)
  - PLATELET COUNT DECREASED [None]
